FAERS Safety Report 4781010-1 (Version None)
Quarter: 2005Q3

REPORT INFORMATION
  Report Type: 
  Country: None (occurrence: None)
  Receive Date: 20050927
  Receipt Date: 20050927
  Transmission Date: 20060218
  Serious: Yes (Other)
  Sender: FDA-Public Use
  Company Number: None

PATIENT
  Sex: Female
  Weight: 63.5036 kg

DRUGS (1)
  1. FLUVOXAMINE     100 MG     EON [Suspect]
     Indication: ASPERGER'S DISORDER
     Dosage: 1 TABLET   BID   PO
     Route: 048
     Dates: start: 20050810, end: 20050915

REACTIONS (3)
  - DEPRESSION [None]
  - SOMNOLENCE [None]
  - THERAPEUTIC RESPONSE UNEXPECTED WITH DRUG SUBSTITUTION [None]
